FAERS Safety Report 8989084 (Version 1)
Quarter: 2012Q4

REPORT INFORMATION
  Report Type: 
  Country: RS (occurrence: RS)
  Receive Date: 20121228
  Receipt Date: 20121228
  Transmission Date: 20130627
  Serious: Yes (Other)
  Sender: FDA-Public Use
  Company Number: RS-PFIZER INC-2012329696

PATIENT
  Age: 56 Year
  Sex: Male
  Weight: 87 kg

DRUGS (1)
  1. CONTROLOC [Suspect]
     Indication: DUODENAL ULCER
     Dosage: 40 mg, 2x/day
     Route: 048
     Dates: start: 20120905, end: 20120905

REACTIONS (4)
  - Choking [Recovered/Resolved]
  - Flushing [Recovered/Resolved]
  - Discomfort [Recovered/Resolved]
  - Lip oedema [Recovered/Resolved]
